FAERS Safety Report 20655470 (Version 1)
Quarter: 2022Q1

REPORT INFORMATION
  Report Type: Spontaneous
  Country: US (occurrence: US)
  Receive Date: 20220330
  Receipt Date: 20220330
  Transmission Date: 20220423
  Serious: Yes (Other)
  Sender: FDA-Public Use
  Company Number: US-JNJFOC-20220345034

PATIENT
  Age: 42 Year
  Sex: Female

DRUGS (3)
  1. IMBRUVICA [Suspect]
     Active Substance: IBRUTINIB
     Indication: Lymphoma
     Route: 048
     Dates: start: 202106
  2. IMBRUVICA [Suspect]
     Active Substance: IBRUTINIB
     Route: 048
     Dates: end: 202110
  3. RITUXIMAB [Suspect]
     Active Substance: RITUXIMAB
     Indication: Lymphoma
     Route: 065

REACTIONS (6)
  - Acute respiratory failure [Unknown]
  - Ileus [Unknown]
  - Cardiac dysfunction [Recovering/Resolving]
  - Acute kidney injury [Not Recovered/Not Resolved]
  - Escherichia sepsis [Unknown]
  - Gingival bleeding [Unknown]
